FAERS Safety Report 19356519 (Version 1)
Quarter: 2021Q2

REPORT INFORMATION
  Report Type: Other
  Country: CA (occurrence: CA)
  Receive Date: 20210602
  Receipt Date: 20210602
  Transmission Date: 20210717
  Serious: Yes (Death, Other)
  Sender: FDA-Public Use
  Company Number: CA-CELLTRION INC.-2021CA007249

PATIENT

DRUGS (6)
  1. RITUXIMAB (UNKNOWN) [Suspect]
     Active Substance: RITUXIMAB
     Indication: MYASTHENIA GRAVIS
     Dosage: 700 MILLIGRAM, 1 EVERY 1 WEEK
     Route: 065
  2. ATOVAQUONE. [Concomitant]
     Active Substance: ATOVAQUONE
     Route: 048
  3. LANSOPRAZOLE. [Concomitant]
     Active Substance: LANSOPRAZOLE
  4. PREDNISONE. [Concomitant]
     Active Substance: PREDNISONE
  5. CEFTRIAXONE. [Concomitant]
     Active Substance: CEFTRIAXONE
  6. NOVORAPID [Concomitant]
     Active Substance: INSULIN ASPART

REACTIONS (4)
  - Sepsis [Fatal]
  - Off label use [Unknown]
  - Choking [Fatal]
  - Shock [Fatal]
